FAERS Safety Report 6437221-2 (Version None)
Quarter: 2009Q4

REPORT INFORMATION
  Report Type: 
  Country: None (occurrence: None)
  Receive Date: 20091112
  Receipt Date: 20091009
  Transmission Date: 20100525
  Serious: No
  Sender: FDA-Public Use
  Company Number: A0811058A

PATIENT
  Age: 33 Year
  Sex: Female

DRUGS (2)
  1. TREXIMET [Suspect]
     Indication: MIGRAINE
     Dosage: 1TAB SINGLE DOSE
     Route: 048
     Dates: start: 20091008, end: 20091008
  2. AMITRIPTYLINE [Concomitant]

REACTIONS (3)
  - CHEST DISCOMFORT [None]
  - MUSCLE TIGHTNESS [None]
  - PAIN IN JAW [None]
